FAERS Safety Report 5913131-1 (Version None)
Quarter: 2008Q4

REPORT INFORMATION
  Report Type: 
  Country: None (occurrence: None)
  Receive Date: 20081006
  Receipt Date: 20080923
  Transmission Date: 20090506
  Serious: Yes (Hospitalization, Other)
  Sender: FDA-Public Use
  Company Number: 2008BI001412

PATIENT
  Age: 57 Year
  Sex: Female

DRUGS (23)
  1. AVONEX [Suspect]
     Indication: MULTIPLE SCLEROSIS
     Dosage: 30 UG; QW; IM
     Route: 030
     Dates: start: 20070201
  2. ARMOUR THYROID [Concomitant]
  3. VICODIN [Concomitant]
  4. MOTRIN [Concomitant]
  5. ATIVAN [Concomitant]
  6. FOSAMAX [Concomitant]
  7. ALBUTEROL [Concomitant]
  8. LESCOL [Concomitant]
  9. BACLOFEN [Concomitant]
  10. NEURONTIN [Concomitant]
  11. NITROSTAT [Concomitant]
  12. ASPIRIN [Concomitant]
  13. ENALAPRIL MALEATE [Concomitant]
  14. VITAMIN B-12 [Concomitant]
  15. ASCORBIC ACID [Concomitant]
  16. GINKGO BILOBA [Concomitant]
  17. DIURETICS [Concomitant]
  18. COREG [Concomitant]
  19. DIGOXIN [Concomitant]
  20. LASIX [Concomitant]
  21. VASOTEC [Concomitant]
  22. INHALERS (NOS) [Concomitant]
  23. PREV MEDS [Concomitant]

REACTIONS (7)
  - BUNDLE BRANCH BLOCK LEFT [None]
  - CARDIAC FAILURE CONGESTIVE [None]
  - CARDIOMYOPATHY [None]
  - INCISION SITE COMPLICATION [None]
  - INCISION SITE OEDEMA [None]
  - MITRAL VALVE INCOMPETENCE [None]
  - PULMONARY HYPERTENSION [None]
